FAERS Safety Report 6965836-1 (Version None)
Quarter: 2010Q3

REPORT INFORMATION
  Report Type: 
  Country: None (occurrence: None)
  Receive Date: 20100903
  Receipt Date: 20100831
  Transmission Date: 20110219
  Serious: Yes (Other)
  Sender: FDA-Public Use
  Company Number: BE-TEVA-246863USA

PATIENT

DRUGS (3)
  1. PIMOZIDE TABLETS [Suspect]
     Indication: TOURETTE'S DISORDER
  2. HALOPERIDOL [Suspect]
     Indication: TOURETTE'S DISORDER
  3. CLONIDINE [Suspect]
     Indication: TOURETTE'S DISORDER

REACTIONS (2)
  - DRUG INEFFECTIVE [None]
  - TOURETTE'S DISORDER [None]
